FAERS Safety Report 22104109 (Version 5)
Quarter: 2023Q2

REPORT INFORMATION
  Report Type: Report from Study
  Country: FR (occurrence: FR)
  Receive Date: 20230316
  Receipt Date: 20230406
  Transmission Date: 20230721
  Serious: Yes (Hospitalization, Other)
  Sender: FDA-Public Use
  Company Number: FR-002147023-NVSC2023FR050215

PATIENT
  Age: 50 Year
  Sex: Male
  Weight: 62 kg

DRUGS (2)
  1. CAPMATINIB [Suspect]
     Active Substance: CAPMATINIB
     Indication: Lung neoplasm malignant
     Dosage: 800 MG, QD
     Route: 048
     Dates: start: 20220215
  2. CAPMATINIB [Suspect]
     Active Substance: CAPMATINIB
     Dosage: 200 MG, BID
     Route: 048
     Dates: start: 20230208, end: 20230328

REACTIONS (5)
  - Cardiac failure [Unknown]
  - Ejection fraction decreased [Recovering/Resolving]
  - Lung neoplasm malignant [Unknown]
  - Malignant neoplasm progression [Unknown]
  - Oedema peripheral [Recovering/Resolving]

NARRATIVE: CASE EVENT DATE: 20230124
